FAERS Safety Report 6169016-1 (Version None)
Quarter: 2009Q2

REPORT INFORMATION
  Report Type: 
  Country: None (occurrence: None)
  Receive Date: 20090427
  Receipt Date: 20090424
  Transmission Date: 20091009
  Serious: Yes (Hospitalization, Other)
  Sender: FDA-Public Use
  Company Number: GB-B.I. PHARMACEUTICALS,INC./RIDGEFIELD-2009-DE-03382GD

PATIENT
  Age: 66 Year
  Sex: Male

DRUGS (3)
  1. CLONIDINE [Suspect]
     Indication: POSTOPERATIVE ANALGESIA
     Dosage: 15-20 ML OF LOCAL ANAESTHETIC INFUSION
  2. LEVOBUPIVACAINE [Suspect]
     Indication: POSTOPERATIVE ANALGESIA
     Dosage: 15-20 ML OF LEVOBUPIVACAINE 0.5% LOCAL ANAESTHETIC INFUSION
  3. LIDOCAINE [Concomitant]
     Dosage: 5ML

REACTIONS (2)
  - FALL [None]
  - JOINT INJURY [None]
